FAERS Safety Report 12587511 (Version 1)
Quarter: 2016Q3

REPORT INFORMATION
  Report Type: Spontaneous
  Country: GB (occurrence: GB)
  Receive Date: 20160725
  Receipt Date: 20160725
  Transmission Date: 20161109
  Serious: Yes (Hospitalization, Other)
  Sender: FDA-Public Use
  Company Number: GB-ROCHE-1740371

PATIENT
  Sex: Female

DRUGS (1)
  1. HERCEPTIN [Suspect]
     Active Substance: TRASTUZUMAB
     Indication: PRODUCT USED FOR UNKNOWN INDICATION
     Route: 058

REACTIONS (15)
  - Abdominal pain upper [Unknown]
  - Pain in extremity [Unknown]
  - Peripheral swelling [Unknown]
  - Feeling abnormal [Unknown]
  - Fatigue [Not Recovered/Not Resolved]
  - Chest pain [Unknown]
  - Insomnia [Unknown]
  - Irritability [Unknown]
  - Cholelithiasis [Unknown]
  - Decreased appetite [Unknown]
  - Malaise [Unknown]
  - Pyrexia [Unknown]
  - Asthenia [Unknown]
  - Arthralgia [Not Recovered/Not Resolved]
  - Scar [Not Recovered/Not Resolved]
